FAERS Safety Report 4437723-4 (Version None)
Quarter: 2004Q3

REPORT INFORMATION
  Report Type: 
  Country: None (occurrence: None)
  Receive Date: 20040831
  Receipt Date: 20040810
  Transmission Date: 20050211
  Serious: Yes (Death, Other)
  Sender: FDA-Public Use
  Company Number: PHBS2004ES10655

PATIENT
  Age: 47 Year
  Sex: Female

DRUGS (6)
  1. CYCLOSPORINE [Suspect]
     Indication: RENAL TRANSPLANT
     Route: 065
  2. MYCOPHENOLATE MOFETIL [Suspect]
     Indication: RENAL TRANSPLANT
     Route: 065
  3. PREDNISONE [Suspect]
     Indication: RENAL TRANSPLANT
  4. METHYLPREDNISOLONE [Suspect]
     Indication: KIDNEY TRANSPLANT REJECTION
     Dosage: 500 MG/D BOLUS
  5. SULFAMETHOXAZOLE + TRIMETHOPRIM [Concomitant]
     Indication: PROPHYLAXIS
  6. ACYCLOVIR [Concomitant]
     Indication: PROPHYLAXIS

REACTIONS (12)
  - ASPERGILLOSIS [None]
  - CYTOMEGALOVIRUS INFECTION [None]
  - DEPRESSED LEVEL OF CONSCIOUSNESS [None]
  - DYSPNOEA [None]
  - HAEMODIALYSIS [None]
  - KIDNEY TRANSPLANT REJECTION [None]
  - MALAISE [None]
  - PLEURAL EFFUSION [None]
  - PRODUCTIVE COUGH [None]
  - PYREXIA [None]
  - RENAL FAILURE CHRONIC [None]
  - WHITE BLOOD CELL COUNT INCREASED [None]
